FAERS Safety Report 25372020 (Version 1)
Quarter: 2025Q2

REPORT INFORMATION
  Report Type: Spontaneous
  Country: CN (occurrence: CN)
  Receive Date: 20250529
  Receipt Date: 20250529
  Transmission Date: 20250716
  Serious: Yes (Hospitalization, Other)
  Sender: RANBAXY
  Company Number: CN-SUN PHARMACEUTICAL INDUSTRIES LTD-2025R1-508664

PATIENT
  Age: 68 Year
  Sex: Male
  Weight: 70 kg

DRUGS (2)
  1. PALIPERIDONE [Suspect]
     Active Substance: PALIPERIDONE
     Indication: Schizophrenia
     Dosage: 3 MILLIGRAM, QD
     Route: 048
     Dates: start: 20250408, end: 20250506
  2. PEROSPIRONE HYDROCHLORIDE [Suspect]
     Active Substance: PEROSPIRONE HYDROCHLORIDE
     Indication: Schizophrenia
     Dosage: 8 MILLIGRAM, BID
     Route: 048
     Dates: start: 20250401, end: 20250506

REACTIONS (1)
  - Tardive dyskinesia [Recovering/Resolving]

NARRATIVE: CASE EVENT DATE: 20250506
